FAERS Safety Report 9949519 (Version 1)
Quarter: 2014Q1

REPORT INFORMATION
  Report Type: Spontaneous
  Country: ZA (occurrence: ZA)
  Receive Date: 20140304
  Receipt Date: 20140304
  Transmission Date: 20141002
  Serious: Yes (Hospitalization)
  Sender: FDA-Public Use
  Company Number: ZA-SA-2014SA025933

PATIENT
  Age: 34 Year
  Sex: Male

DRUGS (10)
  1. ETHAMBUTOL [Suspect]
     Indication: TUBERCULOSIS
     Route: 065
  2. ETHAMBUTOL [Suspect]
     Indication: TUBERCULOSIS
     Route: 065
  3. PYRAZINAMIDE [Suspect]
     Indication: TUBERCULOSIS
     Route: 065
  4. PYRAZINAMIDE [Suspect]
     Indication: TUBERCULOSIS
     Route: 065
  5. RIFAMPICIN [Suspect]
     Indication: TUBERCULOSIS
     Route: 065
  6. ISONIAZID [Suspect]
     Indication: TUBERCULOSIS
     Route: 065
  7. ISONIAZID [Suspect]
     Indication: TUBERCULOSIS
     Route: 065
  8. SULFAMETHOXAZOLE/TRIMETHOPRIM [Suspect]
     Indication: ANTIFUNGAL PROPHYLAXIS
     Route: 065
  9. MOXIFLOXACIN [Concomitant]
  10. STREPTOMYCIN [Concomitant]

REACTIONS (15)
  - Drug reaction with eosinophilia and systemic symptoms [Recovering/Resolving]
  - Dermatitis exfoliative [Unknown]
  - Lymphadenopathy [Unknown]
  - Pyrexia [Unknown]
  - Face oedema [Unknown]
  - Eosinophil count increased [Recovered/Resolved]
  - Hepatitis [Unknown]
  - Pruritus generalised [Unknown]
  - Papule [Unknown]
  - Erythema [Unknown]
  - Conjunctivitis [Unknown]
  - Cheilitis [Unknown]
  - Pain of skin [Unknown]
  - Epidermal necrosis [Unknown]
  - Skin exfoliation [Unknown]
